FAERS Safety Report 6872532-8 (Version None)
Quarter: 2010Q3

REPORT INFORMATION
  Report Type: 
  Country: None (occurrence: None)
  Receive Date: 20100723
  Receipt Date: 20081102
  Transmission Date: 20110219
  Serious: No
  Sender: FDA-Public Use
  Company Number: US-PFIZER INC-2008084726

PATIENT
  Sex: Female
  Weight: 54.43 kg

DRUGS (2)
  1. CHANTIX [Suspect]
     Dates: end: 20081031
  2. PRILOSEC [Concomitant]
     Indication: GASTROOESOPHAGEAL REFLUX DISEASE

REACTIONS (4)
  - ABNORMAL DREAMS [None]
  - CONSTIPATION [None]
  - DEPRESSION [None]
  - NAUSEA [None]
